FAERS Safety Report 9339293 (Version 2)
Quarter: 2013Q2

REPORT INFORMATION
  Report Type: Report from Study
  Country: AU (occurrence: AU)
  Receive Date: 20130610
  Receipt Date: 20130626
  Transmission Date: 20140414
  Serious: Yes (Hospitalization, Other)
  Sender: FDA-Public Use
  Company Number: PHHY2013AU058030

PATIENT
  Age: 51 Year
  Sex: Female

DRUGS (4)
  1. CLOZARIL [Suspect]
     Dosage: 100 MG
     Route: 048
     Dates: start: 20130517
  2. FLUOXETINE [Concomitant]
     Dosage: 20 MG, UNK
     Route: 048
  3. OLANZAPINE [Concomitant]
     Dosage: 10 MG, NIGHT
  4. THYROXINE [Concomitant]
     Dosage: 50 UG, UNK
     Route: 048

REACTIONS (1)
  - Viral infection [Recovered/Resolved]
